FAERS Safety Report 18466551 (Version 2)
Quarter: 2020Q4

REPORT INFORMATION
  Report Type: Other
  Country: JP (occurrence: JP)
  Receive Date: 20201104
  Receipt Date: 20201106
  Transmission Date: 20210114
  Serious: Yes (Other)
  Sender: FDA-Public Use
  Company Number: JP-ROCHE-2706626

PATIENT
  Age: 61 Year
  Sex: Female

DRUGS (1)
  1. KADCYLA [Suspect]
     Active Substance: ADO-TRASTUZUMAB EMTANSINE
     Indication: INFLAMMATORY CARCINOMA OF THE BREAST
     Dosage: DOSAGE WAS UNCERTAIN.
     Route: 041

REACTIONS (1)
  - Interstitial lung disease [Recovering/Resolving]
